FAERS Safety Report 24188738 (Version 1)
Quarter: 2024Q3

REPORT INFORMATION
  Report Type: Spontaneous
  Country: US (occurrence: US)
  Receive Date: 20240808
  Receipt Date: 20240808
  Transmission Date: 20241017
  Serious: No
  Sender: OTSUKA
  Company Number: US-OTSUKA-2023_031066

PATIENT
  Sex: Male
  Weight: 74.84 kg

DRUGS (1)
  1. ABILIFY MAINTENA [Suspect]
     Active Substance: ARIPIPRAZOLE
     Indication: Bipolar disorder
     Dosage: 400 MG, QM
     Route: 065

REACTIONS (7)
  - Sneezing [Unknown]
  - Secretion discharge [Unknown]
  - Thinking abnormal [Unknown]
  - Migraine [Unknown]
  - Aggression [Unknown]
  - Nasopharyngitis [Unknown]
  - Product use issue [Unknown]
